FAERS Safety Report 15588313 (Version 1)
Quarter: 2018Q4

REPORT INFORMATION
  Report Type: Spontaneous
  Country: JP (occurrence: JP)
  Receive Date: 20181105
  Receipt Date: 20181105
  Transmission Date: 20190205
  Serious: Yes (Hospitalization, Other)
  Sender: FDA-Public Use
  Company Number: JP-VIFOR (INTERNATIONAL) INC.-VIT-2018-10295

PATIENT
  Age: 83 Year

DRUGS (1)
  1. MIRCERA [Suspect]
     Active Substance: METHOXY POLYETHYLENE GLYCOL-EPOETIN BETA
     Indication: NEPHROGENIC ANAEMIA
     Route: 058
     Dates: start: 20180921, end: 20180921

REACTIONS (3)
  - Condition aggravated [Unknown]
  - Gastrointestinal haemorrhage [Not Recovered/Not Resolved]
  - Large intestinal ulcer [Unknown]

NARRATIVE: CASE EVENT DATE: 2018
